FAERS Safety Report 9300451 (Version 2)
Quarter: 2014Q1

REPORT INFORMATION
  Report Type: Report from Study
  Country: DE (occurrence: DE)
  Receive Date: 20130521
  Receipt Date: 20140221
  Transmission Date: 20141002
  Serious: Yes (Hospitalization, Other)
  Sender: FDA-Public Use
  Company Number: DE-ELI_LILLY_AND_COMPANY-DE201302000684

PATIENT
  Sex: Female

DRUGS (5)
  1. TERIPARATIDE [Suspect]
     Indication: OSTEOPOROSIS
     Dosage: UNK UNK, QD
     Route: 058
     Dates: start: 20120809, end: 20131223
  2. TERIPARATIDE [Suspect]
     Dosage: UNK, UNKNOWN
     Route: 058
     Dates: start: 201401
  3. CALCIUM [Concomitant]
     Route: 065
  4. VITAMIN D NOS [Concomitant]
     Route: 065
  5. HUMIRA [Concomitant]
     Route: 065

REACTIONS (2)
  - Bursitis [Not Recovered/Not Resolved]
  - Breast cancer [Not Recovered/Not Resolved]
